FAERS Safety Report 8547495-X (Version None)
Quarter: 2012Q3

REPORT INFORMATION
  Report Type: 
  Country: None (occurrence: None)
  Receive Date: 20120727
  Receipt Date: 20120117
  Transmission Date: 20120928
  Serious: No
  Sender: FDA-Public Use
  Company Number: US-ASTRAZENECA-2012SE01529

PATIENT
  Age: 43 Year
  Sex: Male

DRUGS (6)
  1. SEROQUEL [Suspect]
     Route: 048
  2. SYMBICORT [Suspect]
     Route: 055
  3. LEXAPRO [Concomitant]
  4. SEROQUEL [Suspect]
     Route: 048
  5. SEROQUEL [Suspect]
     Indication: BIPOLAR DISORDER
     Route: 048
  6. WELLBUTRIN [Concomitant]

REACTIONS (6)
  - FEELING ABNORMAL [None]
  - ADVERSE DRUG REACTION [None]
  - BIPOLAR DISORDER [None]
  - DRUG CLEARANCE DECREASED [None]
  - ASTHMA [None]
  - RESTLESSNESS [None]
